FAERS Safety Report 11337495 (Version 1)
Quarter: 2015Q3

REPORT INFORMATION
  Report Type: Spontaneous
  Country: US (occurrence: US)
  Receive Date: 20150803
  Receipt Date: 20150803
  Transmission Date: 20151125
  Serious: Yes (Other)
  Sender: FDA-Public Use
  Company Number: US-ELI_LILLY_AND_COMPANY-US200608000513

PATIENT
  Age: 46 Year
  Sex: Male
  Weight: 106.58 kg

DRUGS (18)
  1. ZYPREXA [Suspect]
     Active Substance: OLANZAPINE
     Indication: TACHYPHRENIA
     Dosage: 5 MG, EACH EVENING
     Dates: start: 20020819, end: 200212
  2. AMBIEN [Concomitant]
     Active Substance: ZOLPIDEM TARTRATE
     Dosage: 10 MG, UNK
     Dates: start: 20020805, end: 20020819
  3. POTABA [Concomitant]
     Active Substance: AMINOBENZOATE POTASSIUM
     Indication: PEYRONIE^S DISEASE
     Dosage: 3 MG, 4/D
  4. ZYPREXA [Suspect]
     Active Substance: OLANZAPINE
     Dosage: 10 MG, EACH EVENING
     Route: 048
     Dates: start: 20030112, end: 20030117
  5. ZYPREXA [Suspect]
     Active Substance: OLANZAPINE
     Dosage: 12.5 MG, EACH EVENING
     Route: 048
     Dates: start: 20030118
  6. LEXAPRO [Concomitant]
     Active Substance: ESCITALOPRAM OXALATE
     Indication: DEPRESSION
     Dosage: 20 MEQ, DAILY (1/D)
     Dates: start: 20030925
  7. RISPERIDON ORION [Concomitant]
     Dosage: 0.5 MG, UNK
     Dates: start: 20020806, end: 20020812
  8. ZYPREXA [Suspect]
     Active Substance: OLANZAPINE
     Dosage: 2.5 MG, OTHER
     Route: 048
     Dates: start: 20030102, end: 20030102
  9. LEXAPRO [Concomitant]
     Active Substance: ESCITALOPRAM OXALATE
     Dosage: 10 MG, EACH EVENING
     Route: 048
     Dates: start: 20030112
  10. ZYPREXA [Suspect]
     Active Substance: OLANZAPINE
     Dosage: 15 MG, UNKNOWN
     Dates: start: 200212, end: 200306
  11. NALTREXONE [Concomitant]
     Active Substance: NALTREXONE
     Dosage: 50 MG, DAILY (1/D)
  12. RISPERIDON ORION [Concomitant]
     Dosage: 1 MG, UNK
     Dates: start: 20020812, end: 20020819
  13. ZYPREXA [Suspect]
     Active Substance: OLANZAPINE
     Dosage: 5 MG, AS NEEDED
     Dates: start: 20020819
  14. CELEXA [Concomitant]
     Active Substance: CITALOPRAM HYDROBROMIDE
     Dosage: 20 MG, EACH EVENING
     Dates: start: 2002
  15. ABILIFY [Concomitant]
     Active Substance: ARIPIPRAZOLE
     Dates: start: 20030925
  16. ZYPREXA [Suspect]
     Active Substance: OLANZAPINE
     Dosage: 5 MG, DAILY (1/D)
     Dates: start: 20020829
  17. ZYPREXA [Suspect]
     Active Substance: OLANZAPINE
     Dosage: 7.5 MG, UNK
     Dates: start: 20030102, end: 20030110
  18. CELEXA [Concomitant]
     Active Substance: CITALOPRAM HYDROBROMIDE
     Dosage: 40 MG, UNK
     Dates: start: 20030102, end: 20030112

REACTIONS (7)
  - Diabetes mellitus [Not Recovered/Not Resolved]
  - Blood triglycerides increased [Not Recovered/Not Resolved]
  - Renal disorder [Unknown]
  - Blood cholesterol increased [Not Recovered/Not Resolved]
  - Weight increased [Unknown]
  - Tachycardia [Unknown]
  - Off label use [Unknown]

NARRATIVE: CASE EVENT DATE: 20020819
